FAERS Safety Report 14155642 (Version 1)
Quarter: 2017Q4

REPORT INFORMATION
  Report Type: Spontaneous
  Country: US (occurrence: US)
  Receive Date: 20171103
  Receipt Date: 20171103
  Transmission Date: 20180321
  Serious: No
  Sender: FDA-Public Use
  Company Number: US-TAKEDA-2017TUS022596

PATIENT
  Sex: Male

DRUGS (3)
  1. COLCRYS [Suspect]
     Active Substance: COLCHICINE
     Dosage: 0.6 MG, QD
     Route: 048
     Dates: start: 20171024
  2. COLCRYS [Suspect]
     Active Substance: COLCHICINE
     Indication: GOUT
     Dosage: 0.6 MG, UNK
     Route: 048
  3. COLCRYS [Suspect]
     Active Substance: COLCHICINE
     Dosage: 0.6 MG, UNK
     Route: 048
     Dates: start: 201710, end: 20171014

REACTIONS (3)
  - Inappropriate schedule of drug administration [Unknown]
  - Skin ulcer [Not Recovered/Not Resolved]
  - Diarrhoea [Recovered/Resolved]

NARRATIVE: CASE EVENT DATE: 20171016
